FAERS Safety Report 10679615 (Version 7)
Quarter: 2015Q2

REPORT INFORMATION
  Report Type: Spontaneous
  Country: US (occurrence: US)
  Receive Date: 20141229
  Receipt Date: 20150601
  Transmission Date: 20150821
  Serious: Yes (Hospitalization, Congenital Anomaly, Other)
  Sender: FDA-Public Use
  Company Number: US-APOTEX-2014AP006373

PATIENT
  Age: 0 Day
  Sex: Female

DRUGS (14)
  1. PAXIL CR [Suspect]
     Active Substance: PAROXETINE HYDROCHLORIDE
     Dosage: 25 MG DAILY
     Route: 064
     Dates: end: 2005
  2. PAXIL CR [Suspect]
     Active Substance: PAROXETINE HYDROCHLORIDE
     Indication: PRODUCT USED FOR UNKNOWN INDICATION
     Dosage: 12.5 MG, DAILY
     Route: 064
     Dates: end: 2005
  3. PNV [Concomitant]
     Indication: PREGNANCY
     Dosage: DAILY
     Route: 064
     Dates: end: 2005
  4. VITAMIN D3 [Concomitant]
     Active Substance: CHOLECALCIFEROL
     Indication: VITAMIN D DEFICIENCY
     Dosage: UNK
     Route: 064
  5. LEVOXAL [Concomitant]
     Indication: HYPOTHYROIDISM
     Dosage: UNK
     Route: 064
  6. VICTOZA [Concomitant]
     Active Substance: LIRAGLUTIDE
     Indication: POLYCYSTIC OVARIES
     Dosage: 1.8 MG, QD
     Route: 064
  7. BUPROPIO ER [Concomitant]
     Indication: DEPRESSION
     Dosage: 150 MG, UNKNOWN
     Route: 065
  8. LEXAPRO [Concomitant]
     Active Substance: ESCITALOPRAM OXALATE
     Indication: DEPRESSION
     Dosage: UNK
     Route: 064
     Dates: end: 2005
  9. PAXIL [Suspect]
     Active Substance: PAROXETINE HYDROCHLORIDE
     Indication: PRODUCT USED FOR UNKNOWN INDICATION
     Dosage: UNK UNK, QD
     Route: 064
     Dates: start: 20041118, end: 2005
  10. BELPH-10 [Concomitant]
     Indication: UPPER RESPIRATORY TRACT INFECTION
     Dosage: UNK, QID
     Route: 064
     Dates: end: 2005
  11. BEYAZ [Concomitant]
     Active Substance: DROSPIRENONE\ETHINYL ESTRADIOL\LEVOMEFOLATE CALCIUM
     Indication: MENSTRUAL DISORDER
     Dosage: 1 DF, DAILY
     Route: 064
  12. THYROID [Concomitant]
     Active Substance: LEVOTHYROXINE\LIOTHYRONINE
     Indication: HYPOTHYROIDISM
     Dosage: UNK
     Route: 064
     Dates: end: 2005
  13. Z-PACK [Concomitant]
     Active Substance: AZITHROMYCIN DIHYDRATE
     Indication: UPPER RESPIRATORY TRACT INFECTION
     Dosage: UNK
     Route: 064
     Dates: end: 2005
  14. ZOLOFT [Concomitant]
     Active Substance: SERTRALINE HYDROCHLORIDE
     Indication: PRODUCT USED FOR UNKNOWN INDICATION
     Dosage: UNK
     Route: 064
     Dates: end: 2005

REACTIONS (16)
  - Cleft palate [Unknown]
  - Deafness [Unknown]
  - Malpositioned teeth [Unknown]
  - Otitis media chronic [Unknown]
  - Emotional distress [Unknown]
  - Retrognathia [Unknown]
  - Stickler^s syndrome [Unknown]
  - Depression [Unknown]
  - Oroantral fistula [Unknown]
  - Velopharyngeal incompetence [Unknown]
  - Speech disorder developmental [Unknown]
  - Myopia [Unknown]
  - Congenital oral malformation [Unknown]
  - Injury [Unknown]
  - Activities of daily living impaired [Unknown]
  - Foetal exposure during pregnancy [Unknown]

NARRATIVE: CASE EVENT DATE: 20050521
